FAERS Safety Report 4527424-6 (Version None)
Quarter: 2004Q4

REPORT INFORMATION
  Report Type: 
  Country: None (occurrence: None)
  Receive Date: 20041215
  Receipt Date: 20041208
  Transmission Date: 20050328
  Serious: Yes (Other)
  Sender: FDA-Public Use
  Company Number: US-BRISTOL-MYERS SQUIBB COMPANY-12789004

PATIENT
  Sex: Male

DRUGS (1)
  1. ERBITUX [Suspect]
     Indication: COLORECTAL CANCER METASTATIC
     Route: 042

REACTIONS (1)
  - SYSTEMIC LUPUS ERYTHEMATOSUS [None]
